FAERS Safety Report 7688077-1 (Version None)
Quarter: 2011Q3

REPORT INFORMATION
  Report Type: 
  Country: None (occurrence: None)
  Receive Date: 20110817
  Receipt Date: 20110805
  Transmission Date: 20111222
  Serious: No
  Sender: FDA-Public Use
  Company Number: US-PFIZER INC-2011183662

PATIENT
  Sex: Female
  Weight: 48.526 kg

DRUGS (2)
  1. PENICILLIN G BENZATHINE AND PENICILLIN G PROCAINE [Suspect]
  2. CIPROFLOXACIN [Suspect]

REACTIONS (1)
  - HYPERSENSITIVITY [None]
